FAERS Safety Report 8311414-1 (Version None)
Quarter: 2012Q1

REPORT INFORMATION
  Report Type: 
  Country: None (occurrence: None)
  Receive Date: 20120315
  Receipt Date: 20101129
  Transmission Date: 20120608
  Serious: No
  Sender: FDA-Public Use
  Company Number: PHHY2010US76014

PATIENT
  Age: 27 Year
  Sex: Female

DRUGS (1)
  1. GILENYA [Suspect]
     Dosage: 0.5 MG, QD, ORAL
     Route: 048

REACTIONS (4)
  - ABDOMINAL DISCOMFORT [None]
  - HEADACHE [None]
  - NAUSEA [None]
  - BACK PAIN [None]
